FAERS Safety Report 16093007 (Version 1)
Quarter: 2019Q1

REPORT INFORMATION
  Report Type: Spontaneous
  Country: ES (occurrence: ES)
  Receive Date: 20190320
  Receipt Date: 20190320
  Transmission Date: 20190418
  Serious: Yes (Hospitalization)
  Sender: FDA-Public Use
  Company Number: ES-ACCORD-114035

PATIENT
  Age: 79 Year
  Sex: Female

DRUGS (12)
  1. PROPRANOLOL [Concomitant]
     Active Substance: PROPRANOLOL HYDROCHLORIDE
     Indication: PORTAL HYPERTENSION
     Dosage: STRENGTH 40 MG
     Route: 048
     Dates: start: 20180626
  2. INALADUO ACCUHALER [Concomitant]
     Indication: BRONCHITIS CHRONIC
     Dosage: STRENGTH 50 MICROGRAMS / 250 MICROGRAMS,1 60-DOSE INHALER
     Route: 055
     Dates: start: 20080521
  3. SALBUTAMOL ALDO-UNION [Concomitant]
     Indication: ASTHMA
     Dosage: STRENGTH 100 MCG,SUSPENSION FOR?INHALATION IN AN EFG PRESSURE CONTAINER, 1 200-DOSE INHALER
     Route: 055
     Dates: start: 20080521
  4. CLOMETHIAZOLE/CLOMETHIAZOLE EDISILATE [Concomitant]
     Indication: PERSISTENT DEPRESSIVE DISORDER
     Dosage: STRENGTH 192 MG
     Route: 048
     Dates: start: 20180712
  5. MASTICAL D [Concomitant]
     Indication: PATHOLOGICAL FRACTURE
     Dosage: STRENGTH  500 MG / 800 IU
     Route: 048
     Dates: start: 20170515
  6. FUROSEMIDE. [Suspect]
     Active Substance: FUROSEMIDE
     Indication: ASCITES
     Route: 048
     Dates: end: 20180717
  7. SINGULAIR [Concomitant]
     Active Substance: MONTELUKAST SODIUM
     Indication: BRONCHITIS CHRONIC
     Dosage: STRENGTH 10 MG
     Route: 048
     Dates: start: 20080521
  8. PARACETAMOL/TRAMADOL [Concomitant]
     Indication: BACK PAIN
     Dosage: STRENGTH 75 MG/650 MG ,8
     Route: 048
     Dates: start: 20170510
  9. EUTIROX [Concomitant]
     Active Substance: LEVOTHYROXINE SODIUM
     Indication: HYPOTHYROIDISM
     Dosage: STRENGTH 75 MICROGRAMOS ,
     Route: 048
     Dates: start: 20160708
  10. AMOROLFINE/AMOROLFINE HYDROCHLORIDE [Concomitant]
     Indication: HEPATIC CIRRHOSIS
     Dosage: STRENGTH 50 MG/ML,NAIL VARNISH 5 ML 1 BOTTLE (PRODUCT)
     Route: 048
     Dates: start: 20180712
  11. SPIRONOLACTONE. [Suspect]
     Active Substance: SPIRONOLACTONE
     Indication: ASCITES
     Route: 048
     Dates: start: 20180602, end: 20180716
  12. OMEPRAZOL STADA [Concomitant]
     Active Substance: OMEPRAZOLE
     Indication: OSTEOARTHRITIS
     Dosage: STRENGTH 20 MG,EFG
     Route: 048
     Dates: start: 20080522

REACTIONS (3)
  - Blood creatinine increased [Recovered/Resolved]
  - Renal impairment [Recovered/Resolved]
  - Anaemia [Recovered/Resolved]

NARRATIVE: CASE EVENT DATE: 20180717
